FAERS Safety Report 23973916 (Version 1)
Quarter: 2024Q2

REPORT INFORMATION
  Report Type: Spontaneous
  Country: US (occurrence: US)
  Receive Date: 20240613
  Receipt Date: 20240613
  Transmission Date: 20240715
  Serious: No
  Sender: FDA-Public Use
  Company Number: US-BAUSCHBL-2024BNL028179

PATIENT
  Age: 92 Year
  Sex: Female
  Weight: 51.7 kg

DRUGS (1)
  1. OPCON-A [Suspect]
     Active Substance: NAPHAZOLINE HYDROCHLORIDE\PHENIRAMINE MALEATE
     Indication: Eye pruritus
     Dosage: 1 DROP IN BOTH EYES
     Route: 047
     Dates: start: 20240603, end: 20240603

REACTIONS (5)
  - Eye disorder [Unknown]
  - Dizziness [Unknown]
  - Hypersomnia [Unknown]
  - Vision blurred [Unknown]
  - Inappropriate schedule of product administration [Unknown]

NARRATIVE: CASE EVENT DATE: 20240601
